FAERS Safety Report 9523372 (Version 1)
Quarter: 2013Q1

REPORT INFORMATION
  Report Type: Spontaneous
  Country: US (occurrence: None)
  Receive Date: 20130305
  Receipt Date: 20130305
  Transmission Date: 20140127
  Serious: Yes (Other)
  Sender: FDA-Public Use
  Company Number: 163-21880-12012541

PATIENT
  Age: 84 Year
  Sex: Female

DRUGS (11)
  1. REVLIMID [Suspect]
     Indication: PLASMA CELL MYELOMA
     Dosage: 10 MG, DAILY X 21D/28D, PO
     Route: 048
     Dates: start: 201110
  2. DEXAMETHASONE (DEXAMETHASONE) (UNKNOWN) [Concomitant]
  3. FLUTICASONE (FLUTICASONE) (UNKNOWN) [Concomitant]
  4. HYDROCODONE/APAP (VICODIN) (UNKNOWN) [Concomitant]
  5. SIMVASTATIN [Concomitant]
  6. BISACODYL (BISACODYL) (UNKNOWN) [Concomitant]
  7. ASA (ACETYLSALICYLIC ACID) (UNKNOWN) [Concomitant]
  8. DOCUSATE (DOCUSATE) (UNKNOWN) [Concomitant]
  9. KCL (POTASSIUM CHLORIDE) (UNKNOWN) [Concomitant]
  10. LORATADINE (LORATADINE) (UNKNOWN) [Concomitant]
  11. SULFAMETHOXAZOLE-TRIMETHOPRIM (BACTRIM) (UNKNOWN) [Concomitant]

REACTIONS (3)
  - Neuropathy peripheral [None]
  - Local swelling [None]
  - Ageusia [None]
